FAERS Safety Report 4313553-9 (Version None)
Quarter: 2004Q1

REPORT INFORMATION
  Report Type: 
  Country: None (occurrence: None)
  Receive Date: 20040304
  Receipt Date: 20040212
  Transmission Date: 20041129
  Serious: Yes (Other)
  Sender: FDA-Public Use
  Company Number: FR_040103431

PATIENT
  Age: 16 Year
  Sex: Male
  Weight: 70 kg

DRUGS (5)
  1. ZYPREXA [Suspect]
     Indication: PSYCHOTIC DISORDER
     Dosage: 40 MG/DAY
     Dates: start: 20031230, end: 20040109
  2. CHLORPROMAZINE [Concomitant]
  3. CLONAZEPAM [Concomitant]
  4. TERCIAN (CYAMEMAZINE) [Concomitant]
  5. LITHIUM CARBONATE [Concomitant]

REACTIONS (4)
  - CHOLESTASIS [None]
  - FUNGAL OESOPHAGITIS [None]
  - ORAL FUNGAL INFECTION [None]
  - PROTHROMBIN TIME PROLONGED [None]
